FAERS Safety Report 6130365-4 (Version None)
Quarter: 2009Q1

REPORT INFORMATION
  Report Type: 
  Country: None (occurrence: None)
  Receive Date: 20090324
  Receipt Date: 20090312
  Transmission Date: 20090719
  Serious: Yes (Other)
  Sender: FDA-Public Use
  Company Number: IE-ELI_LILLY_AND_COMPANY-IE200903003819

PATIENT
  Age: 82 Year
  Sex: Female

DRUGS (1)
  1. ZYPREXA [Suspect]
     Indication: ANXIETY

REACTIONS (2)
  - HYPERPYREXIA [None]
  - PELVIC INFECTION [None]
